FAERS Safety Report 12135781 (Version 1)
Quarter: 2016Q1

REPORT INFORMATION
  Report Type: Report from Study
  Country: US (occurrence: US)
  Receive Date: 20160302
  Receipt Date: 20160302
  Transmission Date: 20160526
  Serious: Yes (Hospitalization)
  Sender: FDA-Public Use
  Company Number: US-AMGEN-USASL2016023944

PATIENT
  Sex: Female

DRUGS (1)
  1. PROLIA [Suspect]
     Active Substance: DENOSUMAB
     Indication: PRODUCT USED FOR UNKNOWN INDICATION
     Dosage: UNK
     Route: 065

REACTIONS (12)
  - Productive cough [Unknown]
  - Peripheral swelling [Not Recovered/Not Resolved]
  - Ear swelling [Unknown]
  - Hospitalisation [Unknown]
  - Joint swelling [Unknown]
  - Musculoskeletal pain [Unknown]
  - Mass [Unknown]
  - Blood pressure abnormal [Unknown]
  - Headache [Unknown]
  - Rhinorrhoea [Unknown]
  - Ear pain [Unknown]
  - Amnesia [Unknown]

NARRATIVE: CASE EVENT DATE: 2013
